FAERS Safety Report 11334740 (Version 1)
Quarter: 2015Q3

REPORT INFORMATION
  Report Type: Spontaneous
  Country: TN (occurrence: None)
  Receive Date: 20150731
  Receipt Date: 20150731
  Transmission Date: 20151125
  Serious: Yes (Death, Other)
  Sender: FDA-Public Use
  Company Number: 2015RR-100488

PATIENT
  Age: 19 Year
  Sex: Female

DRUGS (1)
  1. ALLOPURINOL (ALLOPURINOL) UNKNOWN [Suspect]
     Active Substance: ALLOPURINOL
     Indication: PRODUCT USED FOR UNKNOWN INDICATION

REACTIONS (7)
  - Septic shock [None]
  - Toxic epidermal necrolysis [None]
  - Respiratory failure [None]
  - Acute kidney injury [None]
  - Pneumonia bacterial [None]
  - Metabolic acidosis [None]
  - Acinetobacter infection [None]
